FAERS Safety Report 10948953 (Version 1)
Quarter: 2015Q1

REPORT INFORMATION
  Report Type: Spontaneous
  Country: US (occurrence: None)
  Receive Date: 20150323
  Receipt Date: 20150323
  Transmission Date: 20150721
  Serious: No
  Sender: FDA-Public Use
  Company Number: None

PATIENT
  Age: 72 Year
  Sex: Male
  Weight: 65.77 kg

DRUGS (5)
  1. SINGULAIR [Suspect]
     Active Substance: MONTELUKAST SODIUM
     Indication: MULTIPLE ALLERGIES
     Dosage: 1 PILL
     Route: 048
     Dates: start: 20141119, end: 20141220
  2. MAGIC MOUTHWASH [Concomitant]
     Active Substance: DIPHENHYDRAMINE HYDROCHLORIDE\LIDOCAINE HYDROCHLORIDE\NYSTATIN
  3. KYO-DOPLILUS [Concomitant]
  4. NASACORT [Concomitant]
     Active Substance: TRIAMCINOLONE ACETONIDE
  5. ATIVAN [Concomitant]
     Active Substance: LORAZEPAM

REACTIONS (5)
  - Drug ineffective [None]
  - Chest discomfort [None]
  - Sneezing [None]
  - Product substitution issue [None]
  - Sinus headache [None]

NARRATIVE: CASE EVENT DATE: 20141120
